FAERS Safety Report 8530610-1 (Version None)
Quarter: 2012Q3

REPORT INFORMATION
  Report Type: 
  Country: None (occurrence: None)
  Receive Date: 20120723
  Receipt Date: 20120716
  Transmission Date: 20120928
  Serious: No
  Sender: FDA-Public Use
  Company Number: US-BAYER-2012-070956

PATIENT
  Sex: Female

DRUGS (1)
  1. MIRENA [Suspect]
     Indication: CONTRACEPTION
     Dosage: 20 MCG/24HR, CONT
     Route: 015
     Dates: start: 20100701

REACTIONS (10)
  - VULVOVAGINAL MYCOTIC INFECTION [None]
  - MENORRHAGIA [None]
  - HYPOMENORRHOEA [None]
  - VULVOVAGINAL BURNING SENSATION [None]
  - VULVOVAGINAL DISCOMFORT [None]
  - HUMAN PAPILLOMA VIRUS TEST POSITIVE [None]
  - VAGINITIS BACTERIAL [None]
  - VAGINAL DISCHARGE [None]
  - VULVOVAGINAL PAIN [None]
  - LOSS OF LIBIDO [None]
